FAERS Safety Report 16968099 (Version 1)
Quarter: 2019Q4

REPORT INFORMATION
  Report Type: Spontaneous
  Country: CN (occurrence: CN)
  Receive Date: 20191028
  Receipt Date: 20191028
  Transmission Date: 20200122
  Serious: Yes (Hospitalization, Other)
  Sender: FDA-Public Use
  Company Number: CN-ALLERGAN-1943130US

PATIENT
  Sex: Female

DRUGS (1)
  1. NORETHINDRONE UNK [Suspect]
     Active Substance: NORETHINDRONE ACETATE
     Indication: ENDOMETRIAL HYPERPLASIA
     Dosage: UNK
     Route: 065

REACTIONS (3)
  - Intracranial haematoma [Recovered/Resolved]
  - Cerebral venous thrombosis [Recovered/Resolved]
  - Off label use [Unknown]
